FAERS Safety Report 5782109-3 (Version None)
Quarter: 2008Q2

REPORT INFORMATION
  Report Type: 
  Country: None (occurrence: None)
  Receive Date: 20080618
  Receipt Date: 20080604
  Transmission Date: 20081010
  Serious: Yes (Hospitalization)
  Sender: FDA-Public Use
  Company Number: S08-FRA-02070-01

PATIENT
  Age: 77 Year
  Sex: Female

DRUGS (11)
  1. ESCITALOPRAM [Suspect]
  2. ARIXTRA [Suspect]
     Indication: BREAST CANCER
     Dosage: 2.5 MG QD SC
     Route: 058
     Dates: start: 20080325, end: 20080412
  3. ARIXTRA [Suspect]
     Indication: POST PROCEDURAL COMPLICATION
     Dosage: 2.5 MG QD SC
     Route: 058
     Dates: start: 20080325, end: 20080412
  4. ARIXTRA [Suspect]
     Indication: BREAST CANCER
     Dosage: 2.5 MG QAM SC
     Route: 058
     Dates: start: 20080428, end: 20080517
  5. ARIXTRA [Suspect]
     Indication: POST PROCEDURAL COMPLICATION
     Dosage: 2.5 MG QAM SC
     Route: 058
     Dates: start: 20080428, end: 20080517
  6. KARDEGIC      (ACETYLSALICYLATE LYSINE) [Suspect]
     Dosage: 75 MG QD PO
     Route: 048
     Dates: end: 20080517
  7. PROPYLTHIOURACILE     (PROPYTHIOURACIL) [Concomitant]
  8. INEXIUM   (ESOMEPRAZOLE) [Concomitant]
  9. ALPRAZOLAM [Concomitant]
  10. FLUCONAZOLE [Concomitant]
  11. CALCIPARINE [Concomitant]

REACTIONS (4)
  - DRUG INTERACTION [None]
  - HAEMOGLOBIN DECREASED [None]
  - PROTHROMBIN LEVEL DECREASED [None]
  - SUBCUTANEOUS HAEMATOMA [None]
